FAERS Safety Report 4560652-2 (Version None)
Quarter: 2005Q1

REPORT INFORMATION
  Report Type: 
  Country: None (occurrence: None)
  Receive Date: 20050124
  Receipt Date: 20050124
  Transmission Date: 20050727
  Serious: No
  Sender: FDA-Public Use
  Company Number: None

PATIENT
  Sex: Female

DRUGS (1)
  1. ZOMETA [Suspect]
     Indication: MULTIPLE MYELOMA
     Dosage: IV
     Route: 042
     Dates: start: 20050120

REACTIONS (4)
  - INFECTION [None]
  - OEDEMA [None]
  - OSTEONECROSIS [None]
  - WOUND DEHISCENCE [None]
